FAERS Safety Report 11884182 (Version 1)
Quarter: 2015Q4

REPORT INFORMATION
  Report Type: Spontaneous
  Country: US (occurrence: None)
  Receive Date: 20151231
  Receipt Date: 20151231
  Transmission Date: 20160305
  Serious: Yes (Hospitalization)
  Sender: FDA-Public Use
  Company Number: None

PATIENT
  Age: 64 Year
  Sex: Female
  Weight: 78.5 kg

DRUGS (5)
  1. ATORVASTATIN CALCIUM. [Concomitant]
     Active Substance: ATORVASTATIN CALCIUM
  2. LEVETIRACETAM. [Concomitant]
     Active Substance: LEVETIRACETAM
  3. WARFARIN SODIUM. [Concomitant]
     Active Substance: WARFARIN SODIUM
  4. ERGOCALCIFEROL. [Concomitant]
     Active Substance: ERGOCALCIFEROL
  5. BEVACIZUMAB (RHUMAB VEGF) [Suspect]
     Active Substance: BEVACIZUMAB
     Dates: end: 20151214

REACTIONS (5)
  - Lethargy [None]
  - Glioblastoma [None]
  - Incoherent [None]
  - Seizure [None]
  - Malignant neoplasm progression [None]

NARRATIVE: CASE EVENT DATE: 20151227
